FAERS Safety Report 9068661 (Version 2)
Quarter: 2014Q1

REPORT INFORMATION
  Report Type: Spontaneous
  Country: US (occurrence: US)
  Receive Date: 20130206
  Receipt Date: 20140212
  Transmission Date: 20141002
  Serious: Yes (Death, Hospitalization, Other)
  Sender: FDA-Public Use
  Company Number: US-009507513-1301USA009711

PATIENT
  Age: 66 Year
  Sex: Female

DRUGS (11)
  1. ZOCOR [Suspect]
     Route: 048
  2. METHYLPHENIDATE HYDROCHLORIDE [Suspect]
     Route: 048
  3. ACETAMINOPHEN [Suspect]
     Route: 048
  4. LITHIUM [Suspect]
     Route: 048
  5. ESCITALOPRAM [Suspect]
     Route: 048
  6. ARIPIPRAZOLE [Suspect]
     Route: 048
  7. VALACYCLOVIR HYDROCHLORIDE [Suspect]
     Route: 048
  8. PROPOXYPHENE [Suspect]
     Route: 048
  9. HYDROCODONE [Suspect]
     Route: 048
  10. OXYCODONE [Suspect]
     Route: 048
  11. TRIAZOLAM [Suspect]
     Route: 048

REACTIONS (3)
  - Toxicity to various agents [Fatal]
  - Cardio-respiratory arrest [Fatal]
  - Completed suicide [Fatal]
